FAERS Safety Report 24722203 (Version 1)
Quarter: 2024Q4

REPORT INFORMATION
  Report Type: Spontaneous
  Country: BR (occurrence: BR)
  Receive Date: 20241211
  Receipt Date: 20241211
  Transmission Date: 20250114
  Serious: Yes (Hospitalization, Other)
  Sender: SANOFI AVENTIS
  Company Number: BR-SA-2024SA365631

PATIENT
  Age: 54 Year
  Sex: Female

DRUGS (12)
  1. ENOXAPARIN SODIUM [Suspect]
     Active Substance: ENOXAPARIN SODIUM
     Indication: Thrombosis prophylaxis
     Dosage: 60 MG, QD
     Route: 058
     Dates: start: 202106
  2. ENOXAPARIN SODIUM [Suspect]
     Active Substance: ENOXAPARIN SODIUM
     Indication: Aortic thrombosis
     Dosage: UNK
     Dates: start: 20240126, end: 20240918
  3. LOSARTAN POTASSIUM [Suspect]
     Active Substance: LOSARTAN POTASSIUM
     Dosage: UNK
  4. HYDROCHLOROTHIAZIDE [Suspect]
     Active Substance: HYDROCHLOROTHIAZIDE
     Dosage: UNK
  5. ONDANSETRON [Suspect]
     Active Substance: ONDANSETRON
     Dosage: UNK
  6. LOPERAMIDE [Concomitant]
     Active Substance: LOPERAMIDE
     Dosage: UNK
  7. FAMOTIDINE [Concomitant]
     Active Substance: FAMOTIDINE
     Dosage: UNK
  8. IMATINIB [Concomitant]
     Active Substance: IMATINIB
     Dosage: 400 MG
     Dates: start: 20200720, end: 202104
  9. IMATINIB [Concomitant]
     Active Substance: IMATINIB
     Dosage: 400 MG
     Dates: start: 202108, end: 202206
  10. IMATINIB [Concomitant]
     Active Substance: IMATINIB
     Dosage: 800 MG
     Dates: start: 202206, end: 20231027
  11. SUNITINIB [Concomitant]
     Active Substance: SUNITINIB
     Dosage: 37.5 MG, QD
     Route: 048
  12. PREDNISONE [Concomitant]
     Active Substance: PREDNISONE
     Dosage: 40 MG, QD
     Route: 048

REACTIONS (2)
  - Haematuria [Recovered/Resolved]
  - Urinary tract infection [Recovered/Resolved]

NARRATIVE: CASE EVENT DATE: 20240918
